FAERS Safety Report 19176267 (Version 1)
Quarter: 2021Q2

REPORT INFORMATION
  Report Type: Spontaneous
  Country: US (occurrence: US)
  Receive Date: 20210423
  Receipt Date: 20210423
  Transmission Date: 20210717
  Serious: No
  Sender: FDA-Public Use
  Company Number: US-SEAGEN-2021SGN01415

PATIENT
  Sex: Female

DRUGS (4)
  1. TUKYSA [Suspect]
     Active Substance: TUCATINIB
     Indication: PRODUCT USED FOR UNKNOWN INDICATION
     Dosage: 300 MG, BID
     Route: 048
     Dates: start: 202012
  2. HERCEPTIN [Concomitant]
     Active Substance: TRASTUZUMAB
  3. XELODA [Concomitant]
     Active Substance: CAPECITABINE
  4. TUKYSA [Suspect]
     Active Substance: TUCATINIB
     Dosage: 300 MG, QD
     Route: 048

REACTIONS (2)
  - Blood creatine increased [Recovering/Resolving]
  - Palmar-plantar erythrodysaesthesia syndrome [Recovering/Resolving]
